FAERS Safety Report 23794619 (Version 2)
Quarter: 2024Q3

REPORT INFORMATION
  Report Type: Report from Study
  Country: US (occurrence: US)
  Receive Date: 20240429
  Receipt Date: 20240723
  Transmission Date: 20241017
  Serious: Yes (Hospitalization)
  Sender: BAYER
  Company Number: US-BAYER-2024A028179

PATIENT
  Age: 53 Year
  Sex: Female

DRUGS (4)
  1. ADEMPAS [Suspect]
     Active Substance: RIOCIGUAT
     Indication: Pulmonary arterial hypertension
     Dosage: UNK
  2. ADEMPAS [Suspect]
     Active Substance: RIOCIGUAT
     Indication: Pulmonary arterial hypertension
     Dosage: 2.5 MG, TID
     Route: 048
     Dates: start: 202105
  3. AMBRISENTAN [Concomitant]
     Active Substance: AMBRISENTAN
  4. ORENITRAM [Concomitant]
     Active Substance: TREPROSTINIL
     Dosage: 4.5 MG, TID

REACTIONS (5)
  - Fluid retention [None]
  - Internal haemorrhage [None]
  - Haemoglobin decreased [Not Recovered/Not Resolved]
  - Fatigue [None]
  - Hospitalisation [None]
